FAERS Safety Report 9830389 (Version 1)
Quarter: 2014Q1

REPORT INFORMATION
  Report Type: Spontaneous
  Country: SA (occurrence: SA)
  Receive Date: 20140120
  Receipt Date: 20140120
  Transmission Date: 20141002
  Serious: Yes (Hospitalization)
  Sender: FDA-Public Use
  Company Number: SA-TAKEDA-2014TEU000384

PATIENT
  Age: 14 Year
  Sex: Male
  Weight: 45 kg

DRUGS (2)
  1. TACHOSIL [Suspect]
     Indication: HAEMOSTASIS
     Dosage: ONE PATCH
     Dates: start: 20131008, end: 20131008
  2. TACHOSIL [Suspect]
     Indication: SURGERY

REACTIONS (2)
  - Paraplegia [Recovered/Resolved with Sequelae]
  - Off label use [Unknown]
